FAERS Safety Report 25080995 (Version 1)
Quarter: 2025Q1

REPORT INFORMATION
  Report Type: Spontaneous
  Country: CN (occurrence: CN)
  Receive Date: 20250315
  Receipt Date: 20250315
  Transmission Date: 20250409
  Serious: Yes (Other)
  Sender: Kenvue
  Company Number: CN-KENVUE-20250301872

PATIENT

DRUGS (4)
  1. CHILDRENS MOTRIN [Suspect]
     Active Substance: IBUPROFEN
     Indication: Patent ductus arteriosus
     Dosage: 0.6 MILLILITER, ONCE A DAY (10.0 MG/KG)
     Route: 050
     Dates: start: 20250219, end: 20250219
  2. CHILDRENS MOTRIN [Suspect]
     Active Substance: IBUPROFEN
     Dosage: 5.0 MG/KG ONCE A DAY
     Route: 050
     Dates: start: 20250220, end: 20250221
  3. CHILDRENS MOTRIN [Suspect]
     Active Substance: IBUPROFEN
     Dosage: 10.0 MG/KG ONCE A DAY
     Route: 050
     Dates: start: 20250222, end: 20250222
  4. CHILDRENS MOTRIN [Suspect]
     Active Substance: IBUPROFEN
     Dosage: 5.0 MG/KG ONCE A DAY
     Route: 050
     Dates: start: 20250223, end: 20250224

REACTIONS (2)
  - Urine output decreased [Recovering/Resolving]
  - Off label use [Unknown]

NARRATIVE: CASE EVENT DATE: 20250219
